FAERS Safety Report 6423578-5 (Version None)
Quarter: 2009Q4

REPORT INFORMATION
  Report Type: 
  Country: None (occurrence: None)
  Receive Date: 20091102
  Receipt Date: 20091023
  Transmission Date: 20100525
  Serious: Yes (Hospitalization, Other)
  Sender: FDA-Public Use
  Company Number: US-ABBOTT-09P-163-0604907-00

PATIENT
  Sex: Male
  Weight: 61.29 kg

DRUGS (6)
  1. HUMIRA [Suspect]
     Indication: COLITIS ULCERATIVE
     Dates: start: 20090801
  2. ASACOL [Concomitant]
     Indication: COLITIS ULCERATIVE
  3. ZOCOR [Concomitant]
     Indication: BLOOD CHOLESTEROL INCREASED
  4. INFLUENZA VACCINE [Concomitant]
     Indication: ANTIVIRAL PROPHYLAXIS
     Dates: start: 20090101
  5. PNEUMOVAX 23 [Concomitant]
     Indication: PNEUMONIA
     Dates: start: 20090101
  6. PNEUMOVAX 23 [Concomitant]
     Indication: PROPHYLAXIS

REACTIONS (6)
  - ATRIAL FIBRILLATION [None]
  - CELLULITIS [None]
  - HEART RATE INCREASED [None]
  - INFLUENZA [None]
  - LEFT ATRIAL HYPERTROPHY [None]
  - MITRAL VALVE INCOMPETENCE [None]
